FAERS Safety Report 25127267 (Version 3)
Quarter: 2025Q2

REPORT INFORMATION
  Report Type: Spontaneous
  Country: AU (occurrence: AU)
  Receive Date: 20250327
  Receipt Date: 20250605
  Transmission Date: 20250717
  Serious: Yes (Hospitalization, Other)
  Sender: JOHNSON AND JOHNSON
  Company Number: AU-JNJFOC-20250352311

PATIENT
  Age: 19 Year
  Sex: Male

DRUGS (4)
  1. INVEGA [Suspect]
     Active Substance: PALIPERIDONE
     Indication: Schizophrenia
     Route: 048
  2. OLANZAPINE [Suspect]
     Active Substance: OLANZAPINE
     Indication: Schizophrenia
     Route: 065
  3. CLOZAPINE [Interacting]
     Active Substance: CLOZAPINE
     Indication: Schizophrenia
     Route: 065
  4. VALPROIC ACID [Interacting]
     Active Substance: VALPROIC ACID
     Indication: Schizophrenia
     Route: 065

REACTIONS (6)
  - Drug interaction [Unknown]
  - Treatment failure [Unknown]
  - Myocarditis [Recovering/Resolving]
  - Illness [Unknown]
  - Pericarditis [Recovering/Resolving]
  - Off label use [Unknown]
